FAERS Safety Report 4655811-4 (Version None)
Quarter: 2005Q2

REPORT INFORMATION
  Report Type: 
  Country: None (occurrence: None)
  Receive Date: 20050506
  Receipt Date: 20050506
  Transmission Date: 20051028
  Serious: Yes (Other)
  Sender: FDA-Public Use
  Company Number: None

PATIENT
  Sex: Male

DRUGS (1)
  1. DURAGESIC-50 [Suspect]
     Dosage: 50 MCG TOPICAL ONE Q 72 HRS
     Route: 061
     Dates: start: 20050419

REACTIONS (1)
  - PAIN [None]
